FAERS Safety Report 25827014 (Version 2)
Quarter: 2025Q3

REPORT INFORMATION
  Report Type: Spontaneous
  Country: CO (occurrence: CO)
  Receive Date: 20250920
  Receipt Date: 20250925
  Transmission Date: 20251020
  Serious: Yes (Life-Threatening, Hospitalization, Other)
  Sender: MACLEODS
  Company Number: CO-MACLEODS PHARMA-MAC2025055279

PATIENT

DRUGS (1)
  1. TRAMADOL [Suspect]
     Active Substance: TRAMADOL
     Indication: Product used for unknown indication
     Route: 048

REACTIONS (13)
  - Toxic leukoencephalopathy [Recovering/Resolving]
  - Craniocerebral injury [Recovering/Resolving]
  - Pneumonitis [Unknown]
  - Acute kidney injury [Unknown]
  - Rhabdomyolysis [Unknown]
  - Systemic infection [Unknown]
  - Adrenal disorder [Unknown]
  - Aspiration [Unknown]
  - Cerebral haemorrhage [Recovering/Resolving]
  - Respiratory distress [Recovering/Resolving]
  - Seizure [Recovering/Resolving]
  - Overdose [Recovering/Resolving]
  - Intentional product misuse [Recovered/Resolved]
